FAERS Safety Report 12673773 (Version 1)
Quarter: 2016Q3

REPORT INFORMATION
  Report Type: Spontaneous
  Country: FR (occurrence: FR)
  Receive Date: 20160822
  Receipt Date: 20160822
  Transmission Date: 20161109
  Serious: Yes (Other)
  Sender: FDA-Public Use
  Company Number: FR-FRESENIUS KABI-FK201605542

PATIENT
  Age: 92 Year
  Sex: Male

DRUGS (7)
  1. CEFTRIAXONE PANPHARMA [Suspect]
     Active Substance: CEFTRIAXONE
     Indication: SKIN INFECTION
     Route: 030
     Dates: start: 20160702, end: 20160704
  2. XANAX [Concomitant]
     Active Substance: ALPRAZOLAM
  3. PARACETAMOL [Concomitant]
     Active Substance: ACETAMINOPHEN
  4. LINEZOLID 2 MG/ML [Suspect]
     Active Substance: LINEZOLID
     Indication: SKIN INFECTION
     Route: 042
     Dates: start: 20160706, end: 20160718
  5. OXYNORM [Concomitant]
     Active Substance: OXYCODONE HYDROCHLORIDE
  6. LOVENOX [Concomitant]
     Active Substance: ENOXAPARIN SODIUM
  7. PIPERACILLIN AND TAZOBACTAM [Suspect]
     Active Substance: PIPERACILLIN SODIUM\TAZOBACTAM SODIUM
     Indication: SKIN INFECTION
     Route: 042
     Dates: start: 20160704, end: 20160712

REACTIONS (2)
  - Eosinophilia [Recovered/Resolved]
  - Acute kidney injury [Recovering/Resolving]

NARRATIVE: CASE EVENT DATE: 20160706
